FAERS Safety Report 4373960-5 (Version None)
Quarter: 2004Q1

REPORT INFORMATION
  Report Type: 
  Country: None (occurrence: None)
  Receive Date: 20040305
  Receipt Date: 20031204
  Transmission Date: 20041129
  Serious: Yes (Other)
  Sender: FDA-Public Use
  Company Number: 2003UW16066

PATIENT
  Age: 84 Year
  Sex: Female
  Weight: 62.5964 kg

DRUGS (3)
  1. CRESTOR [Suspect]
     Indication: BLOOD CHOLESTEROL INCREASED
     Dosage: 10 MG PO
     Route: 048
     Dates: start: 20031101
  2. ATENNOLOL [Concomitant]
  3. THIAZIDE [Concomitant]

REACTIONS (1)
  - HOT FLUSH [None]
